FAERS Safety Report 8368907-0 (Version None)
Quarter: 2012Q2

REPORT INFORMATION
  Report Type: 
  Country: None (occurrence: None)
  Receive Date: 20120516
  Receipt Date: 20120430
  Transmission Date: 20120825
  Serious: Yes (Hospitalization, Other)
  Sender: FDA-Public Use
  Company Number: IMP_05875_2012

PATIENT
  Age: 45 Year
  Sex: Female

DRUGS (1)
  1. DIGOXIN [Suspect]
     Indication: PRODUCT USED FOR UNKNOWN INDICATION
     Dosage: (0.25 MG, 100 TABLETS (NOT THE RECOMMENDED AMOUNT) ORAL)
     Route: 048

REACTIONS (10)
  - SUICIDAL IDEATION [None]
  - TOXICITY TO VARIOUS AGENTS [None]
  - VOMITING [None]
  - SUPRAVENTRICULAR EXTRASYSTOLES [None]
  - ATRIOVENTRICULAR BLOCK COMPLETE [None]
  - ATRIOVENTRICULAR BLOCK FIRST DEGREE [None]
  - CARDIOACTIVE DRUG LEVEL INCREASED [None]
  - VENTRICULAR EXTRASYSTOLES [None]
  - NAUSEA [None]
  - ATRIOVENTRICULAR BLOCK SECOND DEGREE [None]
